FAERS Safety Report 9384246 (Version 10)
Quarter: 2015Q1

REPORT INFORMATION
  Report Type: Report from Study
  Country: BR (occurrence: BR)
  Receive Date: 20130705
  Receipt Date: 20150322
  Transmission Date: 20150721
  Serious: Yes (Other)
  Sender: FDA-Public Use
  Company Number: BR-ROCHE-717183

PATIENT
  Age: 70 Year
  Sex: Female
  Weight: 83 kg

DRUGS (29)
  1. HUMIRA [Suspect]
     Active Substance: ADALIMUMAB
     Indication: RHEUMATOID ARTHRITIS
     Route: 065
     Dates: start: 2009
  2. INSULIN [Concomitant]
     Active Substance: INSULIN NOS
     Route: 065
  3. SERETIDE [Concomitant]
     Active Substance: FLUTICASONE FUROATE\SALMETEROL XINAFOATE
  4. HYDROCHLOROTHIAZIDE. [Concomitant]
     Active Substance: HYDROCHLOROTHIAZIDE
     Indication: HYPERTENSION
  5. MABTHERA [Suspect]
     Active Substance: RITUXIMAB
     Indication: RHEUMATOID ARTHRITIS
     Dosage: DOSE: 1000 MG/ML; FORM: INFUSION
     Route: 042
     Dates: start: 20100601, end: 20100615
  6. INSULIN [Concomitant]
     Active Substance: INSULIN NOS
     Indication: DIABETES MELLITUS
     Dosage: DOSE: 10 UI AND 40 UI. DRUG: REGULAR INSULIN
     Route: 065
  7. AMIODARONE [Concomitant]
     Active Substance: AMIODARONE
  8. PRISTIQ EXTENDED RELEASE [Concomitant]
     Active Substance: DESVENLAFAXINE SUCCINATE
  9. PROFENID [Concomitant]
     Active Substance: KETOPROFEN
     Route: 065
  10. ARTROSILENE [Concomitant]
     Active Substance: KETOPROFEN
     Indication: ARTHRALGIA
  11. METHOTREXATE [Concomitant]
     Active Substance: METHOTREXATE
     Dosage: FREQUENCY: EVERY TUESDAYS.
     Route: 065
  12. MABTHERA [Suspect]
     Active Substance: RITUXIMAB
     Route: 042
     Dates: start: 20140901, end: 20140915
  13. LOSARTAN POTASSIUM. [Concomitant]
     Active Substance: LOSARTAN POTASSIUM
     Indication: HYPERTENSION
     Route: 065
  14. SALBUTAMOL [Concomitant]
     Active Substance: ALBUTEROL
     Indication: ASTHMA
  15. METHOTREXATE [Concomitant]
     Active Substance: METHOTREXATE
     Dosage: DRUG: TECNOMET METHOTREXATE
     Route: 065
  16. ALPRAZOLAM. [Concomitant]
     Active Substance: ALPRAZOLAM
  17. NIMESULIDE [Concomitant]
     Active Substance: NIMESULIDE
  18. ISONIAZID. [Concomitant]
     Active Substance: ISONIAZID
  19. MABTHERA [Suspect]
     Active Substance: RITUXIMAB
     Route: 042
     Dates: start: 20140430, end: 20140519
  20. PRELONE [Concomitant]
     Active Substance: PREDNISOLONE
     Dosage: AFTER BREAKFAST
     Route: 065
  21. FOLIC ACID. [Concomitant]
     Active Substance: FOLIC ACID
  22. ARTOSIN [Concomitant]
     Indication: PAIN
  23. TYLEX (BRAZIL) [Concomitant]
     Indication: ARTHRITIS
  24. AEROLIN [Concomitant]
     Active Substance: ALBUTEROL
  25. MABTHERA [Suspect]
     Active Substance: RITUXIMAB
     Route: 042
  26. SULFASALAZINE. [Concomitant]
     Active Substance: SULFASALAZINE
  27. PREDNISONE. [Concomitant]
     Active Substance: PREDNISONE
     Route: 065
  28. LANTUS [Concomitant]
     Active Substance: INSULIN GLARGINE
     Indication: DIABETES MELLITUS
  29. BAMIFIX [Concomitant]
     Active Substance: BAMIFYLLINE HYDROCHLORIDE

REACTIONS (57)
  - Pain [Recovering/Resolving]
  - Influenza [Not Recovered/Not Resolved]
  - Rheumatoid arthritis [Not Recovered/Not Resolved]
  - Urinary incontinence [Not Recovered/Not Resolved]
  - Lung disorder [Recovering/Resolving]
  - Gait disturbance [Unknown]
  - Fall [Not Recovered/Not Resolved]
  - Rheumatoid factor increased [Not Recovered/Not Resolved]
  - Gait disturbance [Not Recovered/Not Resolved]
  - Lung disorder [Unknown]
  - Weight decreased [Not Recovered/Not Resolved]
  - Hand deformity [Not Recovered/Not Resolved]
  - Swelling [Not Recovered/Not Resolved]
  - Peripheral swelling [Recovered/Resolved]
  - Musculoskeletal stiffness [Not Recovered/Not Resolved]
  - Asthma [Not Recovered/Not Resolved]
  - Spinal disorder [Recovering/Resolving]
  - Diabetes mellitus [Recovered/Resolved]
  - Arthralgia [Not Recovered/Not Resolved]
  - Feeling hot [Unknown]
  - Therapeutic response decreased [Unknown]
  - Rib fracture [Unknown]
  - Condition aggravated [Not Recovered/Not Resolved]
  - Joint stiffness [Not Recovered/Not Resolved]
  - Coordination abnormal [Not Recovered/Not Resolved]
  - Depression [Not Recovered/Not Resolved]
  - Anxiety [Not Recovered/Not Resolved]
  - Hypoglycaemia [Recovered/Resolved]
  - Skin discolouration [Not Recovered/Not Resolved]
  - Rheumatoid arthritis [Unknown]
  - Cough [Recovering/Resolving]
  - Arthritis [Not Recovered/Not Resolved]
  - Nasopharyngitis [Recovered/Resolved]
  - Dyspnoea [Not Recovered/Not Resolved]
  - Pneumonia [Unknown]
  - Pyrexia [Recovering/Resolving]
  - Deformity [Not Recovered/Not Resolved]
  - Rheumatoid lung [Unknown]
  - Diabetes mellitus [Not Recovered/Not Resolved]
  - Gastrooesophageal reflux disease [Unknown]
  - Drug ineffective [Unknown]
  - Urinary tract infection [Unknown]
  - Pulmonary fibrosis [Unknown]
  - Fall [Unknown]
  - Bronchitis [Not Recovered/Not Resolved]
  - Cardiac disorder [Not Recovered/Not Resolved]
  - Decreased appetite [Unknown]
  - Heart rate increased [Not Recovered/Not Resolved]
  - Dry eye [Unknown]
  - Sinusitis [Not Recovered/Not Resolved]
  - Tremor [Not Recovered/Not Resolved]
  - Finger deformity [Not Recovered/Not Resolved]
  - Mass [Not Recovered/Not Resolved]
  - Eye disorder [Not Recovered/Not Resolved]
  - Lung disorder [Not Recovered/Not Resolved]
  - Pain [Unknown]
  - Fatigue [Unknown]

NARRATIVE: CASE EVENT DATE: 201104
